FAERS Safety Report 8820153 (Version 1)
Quarter: 2012Q4

REPORT INFORMATION
  Report Type: 
  Country: US (occurrence: US)
  Receive Date: 20121001
  Receipt Date: 20121001
  Transmission Date: 20130627
  Serious: Yes (Other)
  Sender: FDA-Public Use
  Company Number: US-ROCHE-1134696

PATIENT
  Sex: Male

DRUGS (7)
  1. RITUXAN [Suspect]
     Indication: CHRONIC LYMPHOCYTIC LEUKAEMIA
     Route: 065
     Dates: start: 20000702
  2. LEUKERAN [Concomitant]
  3. PREDNISONE [Concomitant]
  4. FLUDARABINE [Concomitant]
  5. CYTOXAN [Concomitant]
  6. VINCRISTINE [Concomitant]
  7. PROCRIT [Concomitant]

REACTIONS (3)
  - Weight decreased [Unknown]
  - Lymphoma [Unknown]
  - Bradycardia [Unknown]
